FAERS Safety Report 16032234 (Version 3)
Quarter: 2019Q2

REPORT INFORMATION
  Report Type: Report from Study
  Country: FR (occurrence: FR)
  Receive Date: 20190304
  Receipt Date: 20190425
  Transmission Date: 20190711
  Serious: Yes (Death, Other)
  Sender: FDA-Public Use
  Company Number: FR-JAZZ-2019-FR-002436

PATIENT

DRUGS (1)
  1. DEFITELIO [Suspect]
     Active Substance: DEFIBROTIDE SODIUM
     Indication: PROPHYLAXIS
     Dosage: 20.5 MG/KG, QD
     Route: 042
     Dates: start: 20140917, end: 20140926

REACTIONS (24)
  - Cardio-respiratory arrest [Recovered/Resolved]
  - Condition aggravated [Not Recovered/Not Resolved]
  - Palmar-plantar erythrodysaesthesia syndrome [Not Recovered/Not Resolved]
  - Hepatic function abnormal [Not Recovered/Not Resolved]
  - Jaundice [Not Recovered/Not Resolved]
  - Hyperlactacidaemia [Unknown]
  - Mucosal inflammation [Not Recovered/Not Resolved]
  - Oedema [Unknown]
  - Aspergillus infection [Unknown]
  - Confusional state [Not Recovered/Not Resolved]
  - Disturbance in attention [Recovered/Resolved]
  - Localised oedema [Unknown]
  - Diarrhoea [Unknown]
  - Human herpesvirus 6 infection [Unknown]
  - Multiple organ dysfunction syndrome [Not Recovered/Not Resolved]
  - Drug-induced liver injury [Not Recovered/Not Resolved]
  - Anxiety [Not Recovered/Not Resolved]
  - Acral peeling skin syndrome [Not Recovered/Not Resolved]
  - Bone marrow failure [Fatal]
  - Staphylococcal infection [Unknown]
  - Hepatocellular injury [Not Recovered/Not Resolved]
  - Haematoma [Unknown]
  - Liver disorder [Fatal]
  - Cholestasis [Not Recovered/Not Resolved]

NARRATIVE: CASE EVENT DATE: 201409
